FAERS Safety Report 6370782-0 (Version None)
Quarter: 2009Q3

REPORT INFORMATION
  Report Type: 
  Country: None (occurrence: None)
  Receive Date: 20090923
  Receipt Date: 20070724
  Transmission Date: 20100115
  Serious: Yes (Other)
  Sender: FDA-Public Use
  Company Number: US-ASTRAZENECA-2006UW23663

PATIENT
  Sex: Female
  Weight: 68 kg

DRUGS (26)
  1. SEROQUEL [Suspect]
     Route: 048
     Dates: start: 20030818
  2. CLOZARIL [Concomitant]
     Dates: start: 19980101
  3. RISPERDAL [Concomitant]
  4. THORAZINE [Concomitant]
     Dates: start: 20000101
  5. ZYPREXA [Concomitant]
  6. ASPIRIN [Concomitant]
     Route: 065
  7. CLONAZEPAM [Concomitant]
     Route: 065
  8. ZOCOR [Concomitant]
     Route: 065
  9. ZOCOR [Concomitant]
     Route: 065
  10. TRICOR [Concomitant]
     Route: 065
  11. PREMARIN [Concomitant]
     Route: 065
  12. VITAMIN E [Concomitant]
     Route: 065
  13. MULTI-VITAMIN [Concomitant]
     Dosage: 1 DAILY
     Route: 065
  14. COMBIVENT [Concomitant]
     Dosage: 103 - 18 MCG / HCT INHALE 2 PUFFS EVERY 4 HRS
     Route: 065
  15. IMDUR [Concomitant]
     Route: 065
  16. LASIX [Concomitant]
     Route: 065
  17. LASIX [Concomitant]
     Route: 065
  18. POTASSIUM CHLORIDE [Concomitant]
     Route: 065
  19. COREG [Concomitant]
     Route: 065
  20. AMBIEN [Concomitant]
     Route: 065
  21. DIAZEPAM [Concomitant]
     Route: 065
  22. PAXIL [Concomitant]
     Route: 065
  23. FLONASE [Concomitant]
     Dosage: 50 MCG / ACT 2 SPRAY EACH DAILY
     Route: 045
  24. ALDACTONE [Concomitant]
     Route: 065
  25. LISINOPRIL [Concomitant]
     Route: 065
  26. XANAX [Concomitant]
     Route: 065

REACTIONS (1)
  - PANCREATITIS [None]
